FAERS Safety Report 5279600-5 (Version None)
Quarter: 2007Q1

REPORT INFORMATION
  Report Type: 
  Country: None (occurrence: None)
  Receive Date: 20070328
  Receipt Date: 20070314
  Transmission Date: 20070707
  Serious: Yes (Other)
  Sender: FDA-Public Use
  Company Number: AU-PFIZER INC-2007023926

PATIENT
  Sex: Male

DRUGS (3)
  1. LIPITOR [Suspect]
     Indication: PROPHYLAXIS
  2. WARFARIN SODIUM [Concomitant]
  3. CRESTOR [Concomitant]

REACTIONS (3)
  - FLAT AFFECT [None]
  - LETHARGY [None]
  - URTICARIA [None]
